FAERS Safety Report 6814287-9 (Version None)
Quarter: 2010Q2

REPORT INFORMATION
  Report Type: 
  Country: None (occurrence: None)
  Receive Date: 20100629
  Receipt Date: 20100615
  Transmission Date: 20101027
  Serious: Yes (Hospitalization)
  Sender: FDA-Public Use
  Company Number: A-NJ2010-37437

PATIENT
  Age: 69 Year
  Sex: Female

DRUGS (2)
  1. TRACLEER [Suspect]
     Indication: PULMONARY ARTERIAL HYPERTENSION
     Dosage: ORAL
     Route: 048
     Dates: start: 20100128
  2. REVATIO [Concomitant]

REACTIONS (3)
  - LIVER FUNCTION TEST ABNORMAL [None]
  - PULMONARY ARTERIAL HYPERTENSION [None]
  - RENAL FAILURE [None]
